FAERS Safety Report 24283702 (Version 1)
Quarter: 2024Q3

REPORT INFORMATION
  Report Type: Spontaneous
  Country: US (occurrence: US)
  Receive Date: 20240905
  Receipt Date: 20240905
  Transmission Date: 20241017
  Serious: Yes (Other)
  Sender: ASTELLAS
  Company Number: US-ASTELLAS-2024-AER-001354

PATIENT
  Sex: Female

DRUGS (1)
  1. IZERVAY [Suspect]
     Active Substance: AVACINCAPTAD PEGOL SODIUM
     Indication: Dry age-related macular degeneration
     Dosage: INJECTION
     Dates: start: 202407

REACTIONS (1)
  - Ocular vasculitis [Unknown]

NARRATIVE: CASE EVENT DATE: 20240812
